FAERS Safety Report 4362840-7 (Version None)
Quarter: 2004Q2

REPORT INFORMATION
  Report Type: 
  Country: None (occurrence: None)
  Receive Date: 20040518
  Receipt Date: 20040506
  Transmission Date: 20050107
  Serious: Yes (Hospitalization, Other)
  Sender: FDA-Public Use
  Company Number: HQWYE725406MAY04

PATIENT
  Age: 71 Year
  Sex: Male

DRUGS (6)
  1. CEPHORAL (CEFIXIME) [Suspect]
     Indication: OTITIS MEDIA
     Dosage: 400 MG DAILY, ORAL
     Route: 048
     Dates: start: 20040219, end: 20040220
  2. TAVANIC (LEVOFLOXACIN) [Suspect]
     Indication: OTITIS MEDIA
     Dosage: 500 MG 1 X PER 1 DAY, ORAL
     Route: 048
     Dates: start: 20040201
  3. ACE INHIBITOR NOS (ACE INHIBITOR NOS) [Concomitant]
  4. FENISTIL (DIMETIDINE MALEATE) [Concomitant]
  5. NORVASC [Concomitant]
  6. METFORMIN HCL [Concomitant]

REACTIONS (2)
  - ANGIONEUROTIC OEDEMA [None]
  - ENTEROCOLITIS HAEMORRHAGIC [None]
